FAERS Safety Report 18925446 (Version 1)
Quarter: 2021Q1

REPORT INFORMATION
  Report Type: Spontaneous
  Country: FR (occurrence: FR)
  Receive Date: 20210222
  Receipt Date: 20210222
  Transmission Date: 20210420
  Serious: Yes (Other)
  Sender: FDA-Public Use
  Company Number: FR-TEVA-2021-FR-1881579

PATIENT
  Age: 68 Year
  Sex: Male

DRUGS (6)
  1. ALIMEMAZINE [Concomitant]
     Active Substance: TRIMEPRAZINE
  2. ASPIRINE [Concomitant]
     Active Substance: ASPIRIN
  3. PERINDOPRIL [Concomitant]
     Active Substance: PERINDOPRIL
  4. AMLODIPINE [Suspect]
     Active Substance: AMLODIPINE BESYLATE
     Indication: HYPERTENSION
     Dosage: 5 MG
     Route: 048
     Dates: end: 20201123
  5. ZOPICLONE [Concomitant]
     Active Substance: ZOPICLONE
  6. BISOPROLOL (FUMARATE ACIDE DE) [Concomitant]
     Active Substance: BISOPROLOL FUMARATE

REACTIONS (1)
  - Pemphigoid [Recovered/Resolved]

NARRATIVE: CASE EVENT DATE: 201906
